FAERS Safety Report 23466530 (Version 1)
Quarter: 2024Q1

REPORT INFORMATION
  Report Type: Spontaneous
  Country: US (occurrence: US)
  Receive Date: 20240201
  Receipt Date: 20240201
  Transmission Date: 20240410
  Serious: Yes (Death, Other)
  Sender: FDA-Public Use
  Company Number: US-AMGEN-USASP2024014903

PATIENT

DRUGS (2)
  1. TALIMOGENE LAHERPAREPVEC [Suspect]
     Active Substance: TALIMOGENE LAHERPAREPVEC
     Indication: Metastatic malignant melanoma
     Dosage: 10^6 PLAQUE FORMING UNITS/ML
     Route: 065
     Dates: start: 20151001
  2. TALIMOGENE LAHERPAREPVEC [Suspect]
     Active Substance: TALIMOGENE LAHERPAREPVEC
     Dosage: 10^8 PLAQUE FORMING UNITS/ML EVERY OTHER WEEK (Q2WK)
     Route: 065
     Dates: end: 20220430

REACTIONS (3)
  - Death [Fatal]
  - Metastatic malignant melanoma [Unknown]
  - Therapy partial responder [Unknown]
